FAERS Safety Report 7739548-0 (Version None)
Quarter: 2011Q3

REPORT INFORMATION
  Report Type: 
  Country: None (occurrence: None)
  Receive Date: 20110909
  Receipt Date: 20110907
  Transmission Date: 20111222
  Serious: Yes (Other)
  Sender: FDA-Public Use
  Company Number: JP-PFIZER INC-2011209866

PATIENT

DRUGS (2)
  1. SOLU-MEDROL [Suspect]
     Indication: MULTIPLE SCLEROSIS
     Dosage: UNK
     Dates: start: 20101001
  2. FAMOTIDINE [Concomitant]
     Dosage: UNK
     Dates: end: 20110701

REACTIONS (1)
  - LIVER DISORDER [None]
